FAERS Safety Report 25221244 (Version 1)
Quarter: 2025Q2

REPORT INFORMATION
  Report Type: Spontaneous
  Country: CN (occurrence: CN)
  Receive Date: 20250421
  Receipt Date: 20250421
  Transmission Date: 20250716
  Serious: Yes (Life-Threatening)
  Sender: ALCON
  Company Number: CN-ALCON LABORATORIES-ALC2025CN002148

PATIENT
  Age: 58 Year
  Sex: Male
  Weight: 60 kg

DRUGS (1)
  1. FLUORESCEIN SODIUM [Suspect]
     Active Substance: FLUORESCEIN SODIUM
     Indication: Skin test
     Route: 023
     Dates: start: 20250328, end: 20250328

REACTIONS (3)
  - Respiratory arrest [Recovering/Resolving]
  - Anaphylactic shock [Recovering/Resolving]
  - Cardiac arrest [Recovering/Resolving]

NARRATIVE: CASE EVENT DATE: 20250328
